FAERS Safety Report 23484229 (Version 1)
Quarter: 2024Q1

REPORT INFORMATION
  Report Type: Spontaneous
  Country: CA (occurrence: CA)
  Receive Date: 20240206
  Receipt Date: 20240206
  Transmission Date: 20240410
  Serious: Yes (Disabling, Other)
  Sender: FDA-Public Use
  Company Number: CA-ABBVIE-5623230

PATIENT
  Age: 60 Year
  Sex: Male

DRUGS (9)
  1. MESALAMINE [Suspect]
     Active Substance: MESALAMINE
     Indication: Product used for unknown indication
     Route: 065
  2. RAMIPRIL [Concomitant]
     Active Substance: RAMIPRIL
     Indication: Product used for unknown indication
  3. BUDESONIDE [Suspect]
     Active Substance: BUDESONIDE
     Indication: Product used for unknown indication
     Route: 065
  4. UNSPECIFIED INGREDIENT [Concomitant]
     Active Substance: UNSPECIFIED INGREDIENT
     Indication: Product used for unknown indication
  5. INFLECTRA [Suspect]
     Active Substance: INFLIXIMAB-DYYB
     Indication: Colitis ulcerative
     Dosage: LAST ADMIN DATE: 2023
     Route: 065
     Dates: start: 20230512
  6. INFLECTRA [Suspect]
     Active Substance: INFLIXIMAB-DYYB
     Indication: Colitis ulcerative
     Dosage: LAST ADMIN DATE: 2023
     Route: 065
     Dates: start: 20230928
  7. INFLECTRA [Suspect]
     Active Substance: INFLIXIMAB-DYYB
     Indication: Colitis ulcerative
     Dosage: LAST ADMIN DATE: SEP 2023
     Route: 065
     Dates: start: 20230901
  8. INFLECTRA [Suspect]
     Active Substance: INFLIXIMAB-DYYB
     Indication: Colitis ulcerative
     Route: 065
     Dates: start: 20221125, end: 20230331
  9. INFLECTRA [Suspect]
     Active Substance: INFLIXIMAB-DYYB
     Indication: Colitis ulcerative
     Route: 065
     Dates: start: 20231124

REACTIONS (10)
  - Loss of personal independence in daily activities [Unknown]
  - Defaecation urgency [Unknown]
  - Haematochezia [Unknown]
  - Blood pressure diastolic decreased [Recovered/Resolved]
  - Mucous stools [Unknown]
  - Drug ineffective [Unknown]
  - Proctitis [Unknown]
  - Intentional product use issue [Unknown]
  - Iron deficiency [Unknown]
  - Disability [Unknown]

NARRATIVE: CASE EVENT DATE: 20230101
